FAERS Safety Report 11500292 (Version 1)
Quarter: 2015Q3

REPORT INFORMATION
  Report Type: Spontaneous
  Country: ES (occurrence: ES)
  Receive Date: 20150914
  Receipt Date: 20150914
  Transmission Date: 20151125
  Serious: Yes (Disabling)
  Sender: FDA-Public Use
  Company Number: ES-009507513-1509ESP005404

PATIENT
  Age: 44 Year
  Sex: Female

DRUGS (2)
  1. NUVARING [Suspect]
     Active Substance: ETHINYL ESTRADIOL\ETONOGESTREL
     Dosage: DAILY DOSE UNKNOWN
     Route: 067
     Dates: start: 20150908, end: 20150909
  2. NUVARING [Suspect]
     Active Substance: ETHINYL ESTRADIOL\ETONOGESTREL
     Dosage: DAILY DOSE UNKNOWN
     Route: 067
     Dates: start: 201508, end: 201508

REACTIONS (5)
  - Urinary straining [Recovered/Resolved]
  - Urinary straining [Unknown]
  - Metrorrhagia [Recovered/Resolved]
  - Dysuria [Recovered/Resolved]
  - Urinary tract infection [Recovered/Resolved]

NARRATIVE: CASE EVENT DATE: 201508
